FAERS Safety Report 8540174-4 (Version None)
Quarter: 2012Q3

REPORT INFORMATION
  Report Type: 
  Country: None (occurrence: None)
  Receive Date: 20120726
  Receipt Date: 20120720
  Transmission Date: 20120928
  Serious: Yes (Hospitalization, Other)
  Sender: FDA-Public Use
  Company Number: CA-ROCHE-1091160

PATIENT
  Age: 41 Year
  Sex: Female

DRUGS (5)
  1. DOCUSATE SODIUM [Concomitant]
     Route: 065
  2. TYKERB [Suspect]
     Indication: PRODUCT USED FOR UNKNOWN INDICATION
     Route: 048
  3. XELODA [Suspect]
     Indication: PRODUCT USED FOR UNKNOWN INDICATION
     Route: 048
  4. SENOKOT [Concomitant]
     Route: 065
  5. TYLENOL WITH CODEINE #3 (UNITED STATES) [Concomitant]
     Route: 065

REACTIONS (7)
  - ERYTHEMA [None]
  - PALMAR-PLANTAR ERYTHRODYSAESTHESIA SYNDROME [None]
  - STOMATITIS [None]
  - BREAST CANCER [None]
  - CONDITION AGGRAVATED [None]
  - SKIN EXFOLIATION [None]
  - METASTASES TO LIVER [None]
